FAERS Safety Report 10502418 (Version 17)
Quarter: 2015Q4

REPORT INFORMATION
  Report Type: Report from Study
  Country: US (occurrence: US)
  Receive Date: 20141007
  Receipt Date: 20151005
  Transmission Date: 20160304
  Serious: Yes (Death, Hospitalization, Other)
  Sender: FDA-Public Use
  Company Number: US-ALEXION-A201403866

PATIENT

DRUGS (7)
  1. SOLIRIS [Suspect]
     Active Substance: ECULIZUMAB
     Indication: HAEMOLYTIC URAEMIC SYNDROME
     Dosage: 900 MG, UNK
     Route: 042
     Dates: start: 20140905, end: 201409
  2. SOLIRIS [Suspect]
     Active Substance: ECULIZUMAB
     Dosage: 900 MG, UNK
     Route: 042
     Dates: start: 20140925, end: 20141002
  3. GEMCITABINE [Concomitant]
     Active Substance: GEMCITABINE\GEMCITABINE HYDROCHLORIDE
     Indication: PANCREATIC CARCINOMA METASTATIC
     Dosage: UNK
     Route: 065
  4. ANTIBIOTICS [Concomitant]
     Active Substance: UNSPECIFIED INGREDIENT
     Indication: SINUSITIS
     Dosage: UNK
     Route: 065
  5. ABRAXANE [Concomitant]
     Active Substance: PACLITAXEL
     Indication: CHEMOTHERAPY
     Dosage: 2 WEEKS ON, 1 WK OFF
     Route: 065
  6. ABRAXANE [Concomitant]
     Active Substance: PACLITAXEL
     Indication: PANCREATIC CARCINOMA
  7. GEMZAR [Concomitant]
     Active Substance: GEMCITABINE HYDROCHLORIDE
     Indication: PRODUCT USED FOR UNKNOWN INDICATION
     Dosage: UNK
     Route: 065

REACTIONS (25)
  - Unevaluable event [Unknown]
  - Rash [Not Recovered/Not Resolved]
  - Neutropenia [Unknown]
  - Blood creatinine increased [Unknown]
  - Weight increased [Unknown]
  - Myocardial infarction [Recovering/Resolving]
  - Dyspnoea [Unknown]
  - Rib fracture [Unknown]
  - Cardiac arrest [Unknown]
  - Pulse absent [Unknown]
  - Weight decreased [Unknown]
  - Rash erythematous [Unknown]
  - Pulmonary oedema [Unknown]
  - Syncope [Unknown]
  - Malaise [Unknown]
  - Anaemia [Recovered/Resolved]
  - Sinusitis [Unknown]
  - Death [Fatal]
  - Fatigue [Not Recovered/Not Resolved]
  - Amnesia [Recovering/Resolving]
  - Muscle spasms [Unknown]
  - Arteriovenous fistula thrombosis [Unknown]
  - Nausea [Not Recovered/Not Resolved]
  - Emotional disorder [Unknown]
  - Fistula repair [Unknown]

NARRATIVE: CASE EVENT DATE: 20150520
